FAERS Safety Report 5533307-5 (Version None)
Quarter: 2007Q4

REPORT INFORMATION
  Report Type: 
  Country: None (occurrence: None)
  Receive Date: 20071128
  Receipt Date: 20071114
  Transmission Date: 20080405
  Serious: Yes (Other)
  Sender: FDA-Public Use
  Company Number: 164243USA

PATIENT
  Age: 60 Year
  Sex: Male

DRUGS (2)
  1. PACLITAXEL [Suspect]
     Indication: LUNG SQUAMOUS CELL CARCINOMA STAGE UNSPECIFIED
     Dosage: 175 MG/MM-2
  2. CARBOPLATIN 50 MG, 150 MG + 450 MG INJECTION (CARBOPLATIN) [Concomitant]

REACTIONS (6)
  - BACK PAIN [None]
  - MUSCLE NECROSIS [None]
  - OESOPHAGITIS [None]
  - RADIATION INJURY [None]
  - SWELLING [None]
  - TENDERNESS [None]
